FAERS Safety Report 12793617 (Version 1)
Quarter: 2016Q3

REPORT INFORMATION
  Report Type: Not Available
  Country: US (occurrence: None)
  Receive Date: 20160929
  Receipt Date: 20160929
  Transmission Date: 20161109
  Serious: Yes (Other)
  Sender: FDA-Public Use
  Company Number: None

PATIENT
  Age: 83 Year
  Sex: Female
  Weight: 75.3 kg

DRUGS (9)
  1. METAMUCIL [Concomitant]
     Active Substance: PLANTAGO SEED
  2. XARELTO [Suspect]
     Active Substance: RIVAROXABAN
     Indication: THROMBOSIS PROPHYLAXIS
     Dosage: 1 PILL 1 EVERY MORNING BY MOUTH
     Route: 048
     Dates: start: 20160101, end: 20160208
  3. ATORVASTATIN CALC [Concomitant]
     Active Substance: ATORVASTATIN CALCIUM
  4. CITRICAL + D3 [Concomitant]
  5. DILTIAZEM HCL [Concomitant]
     Active Substance: DILTIAZEM HYDROCHLORIDE
  6. AREDS2 [Concomitant]
  7. TYLENOL [Concomitant]
     Active Substance: ACETAMINOPHEN
  8. DILTIAZEM HCL ER [Concomitant]
  9. ELIQUIS [Concomitant]
     Active Substance: APIXABAN

REACTIONS (1)
  - Blood urine present [None]

NARRATIVE: CASE EVENT DATE: 20160208
